FAERS Safety Report 7657453-5 (Version None)
Quarter: 2011Q3

REPORT INFORMATION
  Report Type: 
  Country: None (occurrence: None)
  Receive Date: 20110804
  Receipt Date: 20110801
  Transmission Date: 20111222
  Serious: Yes (Hospitalization)
  Sender: FDA-Public Use
  Company Number: GR-ABBOTT-11P-066-0843265-00

PATIENT
  Sex: Female
  Weight: 98 kg

DRUGS (12)
  1. OMACOR [Concomitant]
     Indication: DYSLIPIDAEMIA
     Route: 048
     Dates: start: 20080301
  2. PLAVIX [Concomitant]
     Indication: ANGIOPATHY
     Route: 048
     Dates: start: 20080806
  3. RENVELA [Concomitant]
     Indication: HYPERPHOSPHATAEMIA
     Dates: start: 20100322
  4. NORVASC [Concomitant]
     Indication: HYPERTENSION
     Dates: start: 20110322
  5. PERINDOPRIL ERBUMINE [Concomitant]
     Indication: PRODUCT USED FOR UNKNOWN INDICATION
     Route: 048
     Dates: start: 20080407
  6. ZEMPLAR [Suspect]
     Indication: PRODUCT USED FOR UNKNOWN INDICATION
     Dates: start: 20091221
  7. PLAVIX [Concomitant]
     Indication: TYPE 2 DIABETES MELLITUS
  8. LASIX [Concomitant]
     Indication: HYPERTENSION
     Route: 048
     Dates: start: 20110110
  9. EZETIMIBE [Concomitant]
     Indication: DYSLIPIDAEMIA
     Dosage: (10+20) MG
     Route: 048
     Dates: start: 20080707
  10. FERRO-SANOL [Concomitant]
     Indication: IRON DEFICIENCY ANAEMIA
     Route: 048
     Dates: start: 20100628
  11. THYRO-4 [Concomitant]
     Indication: THYROID DISORDER
     Route: 048
     Dates: start: 20101002
  12. LANTUS [Concomitant]
     Indication: TYPE 2 DIABETES MELLITUS
     Route: 058
     Dates: start: 20110322

REACTIONS (2)
  - CORONARY ARTERY DISEASE [None]
  - STENT PLACEMENT [None]
